FAERS Safety Report 5616580-4 (Version None)
Quarter: 2008Q1

REPORT INFORMATION
  Report Type: 
  Country: None (occurrence: None)
  Receive Date: 20080207
  Receipt Date: 20070807
  Transmission Date: 20080703
  Serious: No
  Sender: FDA-Public Use
  Company Number: A0668695A

PATIENT
  Age: 57 Year
  Sex: Female

DRUGS (6)
  1. PAXIL CR [Suspect]
     Indication: DEPRESSION
     Route: 048
     Dates: start: 20030801, end: 20050801
  2. CANCER CHEMOTHERAPY [Concomitant]
  3. AMEN [Concomitant]
  4. DOXEPIN HCL [Concomitant]
  5. DECADRON [Concomitant]
  6. NEXIUM [Concomitant]

REACTIONS (2)
  - FEELING ABNORMAL [None]
  - PHOTOPSIA [None]
